FAERS Safety Report 21848984 (Version 9)
Quarter: 2023Q1

REPORT INFORMATION
  Report Type: Spontaneous
  Country: US (occurrence: US)
  Receive Date: 20230111
  Receipt Date: 20230221
  Transmission Date: 20230417
  Serious: Yes (Other)
  Sender: FDA-Public Use
  Company Number: US-PFIZER INC-PV202300004968

PATIENT
  Age: 38 Year
  Sex: Male
  Weight: 77.11 kg

DRUGS (5)
  1. MEKTOVI [Suspect]
     Active Substance: BINIMETINIB
     Indication: Astrocytoma
     Dosage: 45 MG, 2X/DAY
  2. MEKTOVI [Suspect]
     Active Substance: BINIMETINIB
     Dosage: 30 MG, DAILY
  3. MEKTOVI [Suspect]
     Active Substance: BINIMETINIB
     Dosage: 15 MG
  4. MEKTOVI [Suspect]
     Active Substance: BINIMETINIB
     Dosage: 30 MG, 2X/DAY (TWO TABLETS)
     Route: 048
  5. MEKTOVI [Suspect]
     Active Substance: BINIMETINIB
     Dosage: 15 MG, 2X/DAY [DIRECTIONS: 30 MG= 2 TABS ORAL, EVERY 12HRS #120 TABS]
     Route: 048

REACTIONS (3)
  - Mental impairment [Unknown]
  - Off label use [Unknown]
  - Speech disorder [Unknown]
